FAERS Safety Report 14655992 (Version 1)
Quarter: 2018Q1

REPORT INFORMATION
  Report Type: Spontaneous
  Country: CA (occurrence: CA)
  Receive Date: 20180319
  Receipt Date: 20180319
  Transmission Date: 20180509
  Serious: Yes (Other)
  Sender: FDA-Public Use
  Company Number: CA-JNJFOC-20180314562

PATIENT

DRUGS (3)
  1. RISPERDAL CONSTA [Suspect]
     Active Substance: RISPERIDONE
     Indication: PRODUCT USED FOR UNKNOWN INDICATION
     Route: 051
  2. RISPERDAL [Suspect]
     Active Substance: RISPERIDONE
     Indication: PRODUCT USED FOR UNKNOWN INDICATION
     Route: 048
  3. RISPERDAL CONSTA [Suspect]
     Active Substance: RISPERIDONE
     Indication: PRODUCT USED FOR UNKNOWN INDICATION
     Route: 030

REACTIONS (23)
  - Hyperhidrosis [Unknown]
  - Urine odour abnormal [Unknown]
  - Feeling cold [Unknown]
  - Dandruff [Unknown]
  - Rash [Unknown]
  - Inappropriate schedule of drug administration [Unknown]
  - Night sweats [Unknown]
  - Movement disorder [Unknown]
  - Sexual dysfunction [Unknown]
  - Feeling hot [Unknown]
  - Gait disturbance [Unknown]
  - Headache [Unknown]
  - Paraesthesia [Unknown]
  - Toothache [Unknown]
  - Pollakiuria [Unknown]
  - Pain [Unknown]
  - Fear [Unknown]
  - Skin odour abnormal [Unknown]
  - Trichorrhexis [Unknown]
  - Alopecia [Recovered/Resolved]
  - Nightmare [Unknown]
  - Skin exfoliation [Unknown]
  - Weight increased [Unknown]
